FAERS Safety Report 20044596 (Version 1)
Quarter: 2021Q4

REPORT INFORMATION
  Report Type: Spontaneous
  Country: GB (occurrence: GB)
  Receive Date: 20211108
  Receipt Date: 20211108
  Transmission Date: 20220303
  Serious: Yes (Congenital Anomaly, Other)
  Sender: FDA-Public Use
  Company Number: GB-ABBVIE-21K-167-4146320-00

PATIENT

DRUGS (2)
  1. VALPROATE SODIUM [Suspect]
     Active Substance: VALPROATE SODIUM
     Indication: Maternal exposure timing unspecified
     Route: 064
  2. VIGABATRIN [Suspect]
     Active Substance: VIGABATRIN
     Indication: Maternal exposure timing unspecified
     Route: 064

REACTIONS (9)
  - Foetal anticonvulsant syndrome [Unknown]
  - Learning disorder [Unknown]
  - Developmental delay [Unknown]
  - Hydrocephalus [Unknown]
  - Hypospadias [Unknown]
  - Deafness bilateral [Unknown]
  - Foetal growth restriction [Unknown]
  - Spina bifida [Unknown]
  - Foetal exposure during pregnancy [Unknown]
